FAERS Safety Report 5661904-5 (Version None)
Quarter: 2008Q1

REPORT INFORMATION
  Report Type: 
  Country: None (occurrence: None)
  Receive Date: 20080312
  Receipt Date: 20080311
  Transmission Date: 20080703
  Serious: No
  Sender: FDA-Public Use
  Company Number: US-BAXTER-2008BH001982

PATIENT
  Sex: Female

DRUGS (2)
  1. HEPARIN SODIUM [Suspect]
     Indication: DRUG USE FOR UNKNOWN INDICATION
     Dosage: DOSE UNIT:UNKNOWN
     Route: 065
     Dates: start: 20080101, end: 20080101
  2. HEPARIN SODIUM [Suspect]
     Route: 058
     Dates: start: 20080222, end: 20080201

REACTIONS (2)
  - CHEST PAIN [None]
  - HEART RATE INCREASED [None]
